FAERS Safety Report 24264697 (Version 2)
Quarter: 2024Q4

REPORT INFORMATION
  Report Type: Spontaneous
  Country: PT (occurrence: PT)
  Receive Date: 20240829
  Receipt Date: 20241209
  Transmission Date: 20250114
  Serious: Yes (Life-Threatening, Hospitalization, Other)
  Sender: ACCORD
  Company Number: PT-EMA-DD-20240808-7482647-060445

PATIENT
  Age: 33 Year
  Sex: Male

DRUGS (2)
  1. NALOXONE [Suspect]
     Active Substance: NALOXONE
     Indication: Reversal of opiate activity
  2. FLUMAZENIL [Suspect]
     Active Substance: FLUMAZENIL
     Indication: Reversal of opiate activity

REACTIONS (1)
  - Myoclonus [Recovered/Resolved]
